FAERS Safety Report 16811652 (Version 1)
Quarter: 2019Q3

REPORT INFORMATION
  Report Type: Spontaneous
  Country: CN (occurrence: CN)
  Receive Date: 20190916
  Receipt Date: 20190916
  Transmission Date: 20191005
  Serious: Yes (Hospitalization)
  Sender: FDA-Public Use
  Company Number: CN-JNJFOC-20190906641

PATIENT
  Age: 34 Year
  Sex: Male
  Weight: 70.5 kg

DRUGS (1)
  1. REMICADE [Suspect]
     Active Substance: INFLIXIMAB
     Indication: ANKYLOSING SPONDYLITIS
     Route: 042
     Dates: start: 20190902

REACTIONS (8)
  - Ventricular arrhythmia [Recovered/Resolved]
  - Supraventricular tachycardia [Recovered/Resolved]
  - Abdominal discomfort [Recovered/Resolved]
  - Infusion related reaction [Recovered/Resolved]
  - Cough [Recovered/Resolved]
  - Headache [Recovered/Resolved]
  - Conjunctival hyperaemia [Recovered/Resolved]
  - Chest discomfort [Recovered/Resolved]

NARRATIVE: CASE EVENT DATE: 20190902
